FAERS Safety Report 5027584-7 (Version None)
Quarter: 2006Q2

REPORT INFORMATION
  Report Type: 
  Country: None (occurrence: None)
  Receive Date: 20060614
  Receipt Date: 20060614
  Transmission Date: 20061013
  Serious: Yes (Other)
  Sender: FDA-Public Use
  Company Number: None

PATIENT
  Age: 58 Year
  Sex: Female
  Weight: 62.5964 kg

DRUGS (1)
  1. TOBRADEX [Suspect]
     Indication: EAR INFECTION
     Dosage: 3 DROPS  3 TIMES A DAY OTIC
     Dates: start: 20060405, end: 20060419

REACTIONS (1)
  - HERPES ZOSTER [None]
